FAERS Safety Report 25374576 (Version 1)
Quarter: 2025Q2

REPORT INFORMATION
  Report Type: Spontaneous
  Country: US (occurrence: None)
  Receive Date: 20250528
  Receipt Date: 20250528
  Transmission Date: 20250716
  Serious: Yes (Other)
  Sender: FDA-CTU
  Company Number: None

PATIENT
  Age: 48 Year
  Sex: Female
  Weight: 76.5 kg

DRUGS (2)
  1. KETAMINE [Suspect]
     Active Substance: KETAMINE
     Indication: Major depression
     Route: 042
     Dates: start: 20211212, end: 20250421
  2. KETAMINE [Suspect]
     Active Substance: KETAMINE
     Indication: Depression

REACTIONS (3)
  - Insurance issue [None]
  - Depression [None]
  - Disease recurrence [None]

NARRATIVE: CASE EVENT DATE: 20250515
